FAERS Safety Report 6274220-8 (Version None)
Quarter: 2009Q3

REPORT INFORMATION
  Report Type: 
  Country: None (occurrence: None)
  Receive Date: 20090720
  Receipt Date: 20090716
  Transmission Date: 20100115
  Serious: Yes (Death, Hospitalization)
  Sender: FDA-Public Use
  Company Number: DE-BRISTOL-MYERS SQUIBB COMPANY-14698963

PATIENT
  Age: 63 Year
  Sex: Male

DRUGS (3)
  1. EFAVIRENZ [Suspect]
     Indication: ANTIRETROVIRAL THERAPY
     Dates: start: 20020101
  2. TENOFOVIR [Suspect]
     Indication: ANTIRETROVIRAL THERAPY
     Dates: start: 20020101
  3. EMTRICITABINE [Suspect]
     Indication: ANTIRETROVIRAL THERAPY
     Dates: start: 20020101

REACTIONS (2)
  - MYELODYSPLASTIC SYNDROME [None]
  - RESPIRATORY FAILURE [None]
